FAERS Safety Report 16532423 (Version 1)
Quarter: 2019Q3

REPORT INFORMATION
  Report Type: Spontaneous
  Country: US (occurrence: US)
  Receive Date: 20190704
  Receipt Date: 20190704
  Transmission Date: 20191004
  Serious: Yes (Other)
  Sender: FDA-Public Use
  Company Number: US-BRISTOL-MYERS SQUIBB COMPANY-BMS-2019-062948

PATIENT
  Sex: Female
  Weight: 72.57 kg

DRUGS (2)
  1. ELIQUIS [Suspect]
     Active Substance: APIXABAN
     Indication: CEREBROVASCULAR ACCIDENT PROPHYLAXIS
     Dosage: 5 MILLIGRAM, BID
     Route: 048
     Dates: start: 201902
  2. MYRBETRIQ [Suspect]
     Active Substance: MIRABEGRON
     Indication: PRODUCT USED FOR UNKNOWN INDICATION
     Dosage: 50 MILLIGRAM, QD
     Route: 065
     Dates: end: 201906

REACTIONS (6)
  - Fatigue [Unknown]
  - Fluid retention [Unknown]
  - Seasonal allergy [Unknown]
  - Cardiac disorder [Unknown]
  - Arthritis [Unknown]
  - Peripheral swelling [Unknown]
